FAERS Safety Report 15749301 (Version 2)
Quarter: 2019Q1

REPORT INFORMATION
  Report Type: Spontaneous
  Country: US (occurrence: US)
  Receive Date: 20181221
  Receipt Date: 20190128
  Transmission Date: 20190417
  Serious: No
  Sender: FDA-Public Use
  Company Number: US-PFIZER INC-2018523166

PATIENT
  Age: 11 Year
  Sex: Female

DRUGS (1)
  1. EUCRISA [Suspect]
     Active Substance: CRISABOROLE
     Indication: ERYTHEMA
     Dosage: UNK, 2X/DAY (ONE APPLICATION ON AFFECTED RED AREAS OF SKIN TWICE A DAY UNTIL RESOLUTION)

REACTIONS (3)
  - Pain [Unknown]
  - Erythema [Unknown]
  - Rash [Unknown]
